FAERS Safety Report 26195070 (Version 1)
Quarter: 2025Q4

REPORT INFORMATION
  Report Type: Spontaneous
  Country: CN (occurrence: CN)
  Receive Date: 20251224
  Receipt Date: 20251224
  Transmission Date: 20260118
  Serious: Yes (Other)
  Sender: MYLAN
  Company Number: CN-MYLANLABS-2025M1109431

PATIENT
  Age: 56 Year
  Sex: Male

DRUGS (7)
  1. LIPITOR [Suspect]
     Active Substance: ATORVASTATIN CALCIUM
     Indication: Vascular graft
     Dosage: 20 MILLIGRAM, QD (ONCE DAILY)
     Route: 061
     Dates: start: 20251006, end: 20251218
  2. EZETIMIBE [Concomitant]
     Active Substance: EZETIMIBE
     Indication: Vascular graft
     Dosage: 10 MILLIGRAM, QD
     Route: 061
     Dates: start: 20251116, end: 20251218
  3. NICORANDIL [Concomitant]
     Active Substance: NICORANDIL
     Indication: Vascular graft
     Dosage: 5 MILLIGRAM, TID
     Route: 061
     Dates: start: 20251006, end: 20251218
  4. METOPROLOL SUCCINATE [Concomitant]
     Active Substance: METOPROLOL SUCCINATE
     Indication: Vascular graft
     Dosage: 47.5 MILLIGRAM, QD
     Route: 061
     Dates: start: 20251006, end: 20251218
  5. DILTIAZEM HYDROCHLORIDE [Concomitant]
     Active Substance: DILTIAZEM HYDROCHLORIDE
     Indication: Vascular graft
     Dosage: 90 MILLIGRAM, QD
     Route: 061
     Dates: start: 20251006, end: 20251218
  6. CLOPIDOGREL BISULFATE [Concomitant]
     Active Substance: CLOPIDOGREL BISULFATE
     Indication: Vascular graft
     Dosage: 75 MILLIGRAM (11 TIMES A DAY)
     Route: 061
     Dates: start: 20251006, end: 20251218
  7. ASPIRIN [Concomitant]
     Active Substance: ASPIRIN
     Indication: Vascular graft
     Dosage: 100 MILLIGRAM, QD
     Route: 061
     Dates: start: 20251006, end: 20251218

REACTIONS (2)
  - Renal impairment [Recovering/Resolving]
  - Hepatic function abnormal [Recovering/Resolving]

NARRATIVE: CASE EVENT DATE: 20251204
